FAERS Safety Report 13211172 (Version 1)
Quarter: 2017Q1

REPORT INFORMATION
  Report Type: Spontaneous
  Country: US (occurrence: US)
  Receive Date: 20170210
  Receipt Date: 20170210
  Transmission Date: 20170428
  Serious: No
  Sender: FDA-Public Use
  Company Number: US-PFIZER INC-2017054380

PATIENT
  Age: 8 Year
  Sex: Male

DRUGS (5)
  1. DILAUDID [Suspect]
     Active Substance: HYDROMORPHONE HYDROCHLORIDE
  2. METHADONE [Suspect]
     Active Substance: METHADONE HYDROCHLORIDE
  3. ATIVAN [Suspect]
     Active Substance: LORAZEPAM
  4. GABAPENTIN. [Suspect]
     Active Substance: GABAPENTIN
  5. FLEXERIL [Suspect]
     Active Substance: CYCLOBENZAPRINE HYDROCHLORIDE

REACTIONS (3)
  - Product use issue [Unknown]
  - Toxicity to various agents [Recovered/Resolved]
  - Mental status changes [Recovered/Resolved]
